FAERS Safety Report 17650917 (Version 1)
Quarter: 2020Q2

REPORT INFORMATION
  Report Type: Spontaneous
  Country: US (occurrence: US)
  Receive Date: 20200409
  Receipt Date: 20200409
  Transmission Date: 20200713
  Serious: Yes (Hospitalization)
  Sender: FDA-Public Use
  Company Number: None

PATIENT
  Age: 47 Year
  Sex: Male
  Weight: 103.2 kg

DRUGS (16)
  1. LEVOTHYROXINE 0.075MG MG TAB [Concomitant]
     Dates: start: 20200301
  2. BEVACIZUMAB. [Suspect]
     Active Substance: BEVACIZUMAB
     Indication: RESPIRATORY PAPILLOMA
     Dosage: ?          OTHER FREQUENCY:EVERY 6 WEEKS;?
     Route: 041
     Dates: start: 20190501, end: 20191209
  3. CARVEDILOL 6.25 MG TAB [Concomitant]
     Dates: start: 20110227
  4. VENLAFAXINE ER 75MG TAB [Concomitant]
     Dates: start: 20180917
  5. ARIPIPRAZOLE 20MG TAB [Concomitant]
     Dates: start: 20200328
  6. NOVOLOG 100 U/ML [Concomitant]
     Dates: start: 20180221
  7. VALSARTAN 40MG TAB [Concomitant]
     Dates: start: 20200110, end: 20200324
  8. OXYCODONE TAB [Concomitant]
     Dates: start: 20180223
  9. TRAZODONE [Concomitant]
     Active Substance: TRAZODONE HYDROCHLORIDE
     Dates: start: 20200301
  10. PROMETHAZINE 25MG TAB [Concomitant]
     Dates: start: 20191114
  11. CARVEDILOL. [Concomitant]
     Active Substance: CARVEDILOL
     Dates: start: 20200110
  12. ISOSORBIDE ER 30MG TAB [Concomitant]
     Dates: start: 20200110, end: 20200324
  13. LEVMIR FLEXTOUCH 100 U/ML [Concomitant]
     Dates: start: 20180215
  14. TORSEMIDE 100MG TAB [Concomitant]
     Dates: start: 20200110
  15. ENOXAPARIN 150MG SQ [Concomitant]
     Dates: start: 20200110
  16. HYDRALAZINE 10MG TAB [Concomitant]
     Dates: start: 20200104, end: 20200324

REACTIONS (4)
  - Condition aggravated [None]
  - Pancreatitis [None]
  - Deep vein thrombosis [None]
  - Pulmonary embolism [None]

NARRATIVE: CASE EVENT DATE: 20191228
